FAERS Safety Report 6667482-6 (Version None)
Quarter: 2010Q2

REPORT INFORMATION
  Report Type: 
  Country: None (occurrence: None)
  Receive Date: 20100405
  Receipt Date: 20100319
  Transmission Date: 20101027
  Serious: Yes (Death, Other)
  Sender: FDA-Public Use
  Company Number: JP-BAYER-201010846BYL

PATIENT
  Age: 12 Year
  Sex: Male

DRUGS (2)
  1. FLUDARA [Suspect]
     Indication: CORD BLOOD TRANSPLANT THERAPY
     Route: 042
  2. BUSULFEX [Concomitant]
     Indication: CORD BLOOD TRANSPLANT THERAPY
     Route: 065

REACTIONS (5)
  - BRAIN STEM HAEMORRHAGE [None]
  - ENCEPHALOPATHY [None]
  - PYREXIA [None]
  - RASH [None]
  - THROMBOTIC MICROANGIOPATHY [None]
